FAERS Safety Report 5353622-8 (Version None)
Quarter: 2007Q2

REPORT INFORMATION
  Report Type: 
  Country: None (occurrence: None)
  Receive Date: 20070612
  Receipt Date: 20070606
  Transmission Date: 20071010
  Serious: Yes (Other)
  Sender: FDA-Public Use
  Company Number: US-BRISTOL-MYERS SQUIBB COMPANY-12384491

PATIENT
  Sex: Female

DRUGS (6)
  1. ESTRACE [Suspect]
     Indication: HORMONE REPLACEMENT THERAPY
     Dosage: DURATION OF THERAPY:  ^SEVERAL YEARS^
     Route: 048
     Dates: start: 19980101, end: 20000101
  2. PROVERA [Suspect]
     Indication: HORMONE REPLACEMENT THERAPY
     Dosage: DURATION OF THERAPY:  ^SEVERAL YEARS^
     Route: 048
     Dates: start: 19980101, end: 20000101
  3. PREMARIN [Suspect]
     Indication: HORMONE REPLACEMENT THERAPY
     Route: 048
  4. PREMPRO [Suspect]
     Indication: HORMONE REPLACEMENT THERAPY
     Route: 048
     Dates: start: 20000301, end: 20010201
  5. COMBIPATCH [Suspect]
     Indication: MENOPAUSAL SYMPTOMS
     Dates: start: 20000101, end: 20000901
  6. BUMETANIDE [Concomitant]
     Indication: FLUID RETENTION
     Dates: start: 19991201, end: 20011001

REACTIONS (1)
  - BREAST CANCER [None]
